FAERS Safety Report 5628299-4 (Version None)
Quarter: 2008Q1

REPORT INFORMATION
  Report Type: 
  Country: None (occurrence: None)
  Receive Date: 20080215
  Receipt Date: 20080211
  Transmission Date: 20080703
  Serious: Yes (Other)
  Sender: FDA-Public Use
  Company Number: GB-BOEHRINGER INGELHEIM GMBH, GERMANY-2008-BP-02116RO

PATIENT
  Age: 71 Year
  Sex: Female

DRUGS (6)
  1. METHOTREXATE [Suspect]
     Indication: RHEUMATOID ARTHRITIS
     Route: 048
     Dates: start: 20040601, end: 20060801
  2. METHOTREXATE [Suspect]
     Route: 058
     Dates: start: 20060801
  3. SALAZOPYRIN [Suspect]
     Indication: RHEUMATOID ARTHRITIS
     Dates: start: 20040101, end: 20040101
  4. HYDROXYCHLOROQUINE SULFATE [Suspect]
     Indication: RHEUMATOID ARTHRITIS
     Dates: start: 20050101
  5. HIGH DOSE STEROIDS [Concomitant]
     Indication: PNEUMONITIS
  6. FOLINIC ACID [Concomitant]
     Indication: PNEUMONITIS

REACTIONS (4)
  - NAUSEA [None]
  - PNEUMONITIS [None]
  - RASH [None]
  - THERAPEUTIC PRODUCT INEFFECTIVE [None]
